FAERS Safety Report 8110863-4 (Version None)
Quarter: 2012Q1

REPORT INFORMATION
  Report Type: 
  Country: None (occurrence: None)
  Receive Date: 20120125
  Receipt Date: 20120112
  Transmission Date: 20120608
  Serious: Yes (Hospitalization, Other)
  Sender: FDA-Public Use
  Company Number: 2012PROUSA00942

PATIENT
  Age: 66 Year
  Sex: Male
  Weight: 61 kg

DRUGS (7)
  1. PROVENGE [Suspect]
     Indication: PROSTATE CANCER METASTATIC
     Dosage: 250 ML, SINGLE, INTRAVENOUS
     Route: 042
     Dates: start: 20111103, end: 20111103
  2. FLEXERIL [Suspect]
  3. PROVENGE [Suspect]
     Indication: PROSTATE CANCER METASTATIC
     Dosage: 250 ML, SINGLE, INTRAVENOUS
     Route: 042
     Dates: start: 20111205, end: 20111205
  4. NEXIUM [Concomitant]
  5. METAMUCIL /00091301/ (PSYLLIUM HYDROPHILIC MUCILLOID) [Concomitant]
  6. LUPRON [Concomitant]
  7. DENOSUMAB (DENOSUMAB) [Concomitant]

REACTIONS (13)
  - BLOOD CALCIUM DECREASED [None]
  - PAIN [None]
  - MEMORY IMPAIRMENT [None]
  - METASTASES TO CENTRAL NERVOUS SYSTEM [None]
  - TRANSAMINASES INCREASED [None]
  - DYSPHAGIA [None]
  - ALANINE AMINOTRANSFERASE INCREASED [None]
  - THROMBOCYTOPENIA [None]
  - URINARY TRACT INFECTION BACTERIAL [None]
  - MENTAL STATUS CHANGES [None]
  - ACTIVITIES OF DAILY LIVING IMPAIRED [None]
  - PNEUMONIA KLEBSIELLA [None]
  - ASPARTATE AMINOTRANSFERASE INCREASED [None]
